FAERS Safety Report 18174633 (Version 1)
Quarter: 2020Q3

REPORT INFORMATION
  Report Type: Spontaneous
  Country: US (occurrence: US)
  Receive Date: 20200820
  Receipt Date: 20200820
  Transmission Date: 20201103
  Serious: Yes (Other)
  Sender: FDA-Public Use
  Company Number: US-PFIZER INC-2020322379

PATIENT
  Age: 52 Year
  Sex: Female

DRUGS (3)
  1. TRINTELLIX [Suspect]
     Active Substance: VORTIOXETINE HYDROBROMIDE
     Dosage: 10 MG, 1X/DAY
     Route: 048
     Dates: start: 202004
  2. TRINTELLIX [Suspect]
     Active Substance: VORTIOXETINE HYDROBROMIDE
     Indication: DEPRESSION
     Dosage: 10 MG, DAILY
     Dates: start: 202004
  3. NEURONTIN [Suspect]
     Active Substance: GABAPENTIN
     Indication: TUMOUR PAIN
     Dosage: 3600 MG, 1X/DAY

REACTIONS (5)
  - Memory impairment [Unknown]
  - Suicidal ideation [Unknown]
  - Off label use [Unknown]
  - Product use in unapproved indication [Unknown]
  - Weight increased [Unknown]
